FAERS Safety Report 6902578-2 (Version None)
Quarter: 2010Q3

REPORT INFORMATION
  Report Type: 
  Country: None (occurrence: None)
  Receive Date: 20100803
  Receipt Date: 20080529
  Transmission Date: 20110219
  Serious: Yes (Other)
  Sender: FDA-Public Use
  Company Number: US-PFIZER INC-2008046034

PATIENT
  Sex: Female
  Weight: 79.4 kg

DRUGS (9)
  1. LYRICA [Suspect]
     Indication: PAIN
     Dates: start: 20080505, end: 20080525
  2. AVALIDE [Concomitant]
  3. PROCARDIA [Concomitant]
  4. PREVACID [Concomitant]
  5. ZOCOR [Concomitant]
  6. ZOLOFT [Concomitant]
  7. AMBIEN [Concomitant]
  8. METHOTREXATE [Concomitant]
  9. MORPHINE [Concomitant]

REACTIONS (10)
  - CELLULITIS [None]
  - COUGH [None]
  - DISORIENTATION [None]
  - GLOSSODYNIA [None]
  - HALLUCINATION [None]
  - ILL-DEFINED DISORDER [None]
  - SWELLING FACE [None]
  - SWOLLEN TONGUE [None]
  - TREMOR [None]
  - WHEEZING [None]
